FAERS Safety Report 7600023-5 (Version None)
Quarter: 2011Q3

REPORT INFORMATION
  Report Type: 
  Country: None (occurrence: None)
  Receive Date: 20110711
  Receipt Date: 20110627
  Transmission Date: 20111222
  Serious: Yes (Other)
  Sender: FDA-Public Use
  Company Number: US-BAYER-2010-007089

PATIENT
  Sex: Female
  Weight: 81.633 kg

DRUGS (15)
  1. YAZ [Suspect]
     Indication: CONTRACEPTION
     Dosage: UNK
     Dates: start: 20080301, end: 20090801
  2. TENUATE [Concomitant]
     Dosage: 75 MG, UNK
  3. YASMIN [Suspect]
     Indication: CONTRACEPTION
     Dosage: UNK
     Dates: start: 20050101, end: 20070201
  4. ORTHO TRI-CYCLEN LO [Concomitant]
  5. PHENAZOPYRIDINE HCL TAB [Concomitant]
  6. DEPO-PROVERA [Concomitant]
     Dosage: EVERY 3 MONTHS
     Route: 030
     Dates: start: 20100519
  7. DEPO-PROVERA [Concomitant]
     Dosage: EVERY 3 MONTHS
     Route: 030
     Dates: start: 20100324
  8. PHENAZOPYRIDINE HCL TAB [Concomitant]
     Dosage: 200 MG, UNK
     Route: 048
  9. AUGMENTIN '125' [Concomitant]
  10. YAZ [Suspect]
     Indication: HORMONE THERAPY
  11. PHENERGAN HCL [Concomitant]
     Dosage: 12.5
  12. YASMIN [Suspect]
     Indication: HORMONE THERAPY
  13. DEPO-PROVERA [Concomitant]
     Indication: CONTRACEPTION
     Dosage: 150 MG, Q3MON
     Route: 030
     Dates: start: 20100224
  14. MERIDIA [Concomitant]
  15. ADIPEX [Concomitant]

REACTIONS (9)
  - NEPHROLITHIASIS [None]
  - INJURY [None]
  - EMOTIONAL DISTRESS [None]
  - CHOLECYSTITIS [None]
  - GALLBLADDER DISORDER [None]
  - ANXIETY [None]
  - CHOLELITHIASIS [None]
  - PAIN [None]
  - ABDOMINAL PAIN UPPER [None]
